FAERS Safety Report 6295469-4 (Version None)
Quarter: 2009Q3

REPORT INFORMATION
  Report Type: 
  Country: None (occurrence: None)
  Receive Date: 20090803
  Receipt Date: 20090722
  Transmission Date: 20100115
  Serious: Yes (Life-Threatening)
  Sender: FDA-Public Use
  Company Number: PA-GENENTECH-287810

PATIENT
  Sex: Male

DRUGS (2)
  1. MABTHERA [Suspect]
     Indication: HAIRY CELL LEUKAEMIA
     Dosage: 375 MG/M2, 1/WEEK
     Route: 042
     Dates: start: 20080915, end: 20081006
  2. CLADRIBINE [Concomitant]
     Indication: DRUG USE FOR UNKNOWN INDICATION
     Dosage: UNK
     Dates: start: 20080222, end: 20080831

REACTIONS (1)
  - NERVOUS SYSTEM DISORDER [None]
